FAERS Safety Report 11328688 (Version 2)
Quarter: 2015Q3

REPORT INFORMATION
  Report Type: Spontaneous
  Country: US (occurrence: US)
  Receive Date: 20150731
  Receipt Date: 20150820
  Transmission Date: 20151125
  Serious: Yes (Disabling, Other)
  Sender: FDA-Public Use
  Company Number: US-REGENERON PHARMACEUTICALS, INC.-2015-11875

PATIENT

DRUGS (14)
  1. EYLEA [Suspect]
     Active Substance: AFLIBERCEPT
     Dosage: 2 MG MILLIGRAM(S), 4WKS
     Route: 031
     Dates: start: 20150127, end: 20150127
  2. ASPIRIN                            /00002701/ [Concomitant]
     Active Substance: ASPIRIN
  3. EYLEA [Suspect]
     Active Substance: AFLIBERCEPT
     Dosage: 2 MG MILLIGRAM(S), 4WKS
     Route: 031
     Dates: start: 20150324, end: 20150324
  4. ISRADIPINE. [Concomitant]
     Active Substance: ISRADIPINE
     Dosage: 5 MG MILLIGRAM(S), QD
     Route: 048
  5. PLAVIX [Concomitant]
     Active Substance: CLOPIDOGREL BISULFATE
     Dosage: 75 MG MILLIGRAM(S), QD
  6. EYLEA [Suspect]
     Active Substance: AFLIBERCEPT
     Indication: NEOVASCULAR AGE-RELATED MACULAR DEGENERATION
     Dosage: 2 MG MILLIGRAM(S), 4WKS
     Route: 031
     Dates: start: 2014
  7. EYLEA [Suspect]
     Active Substance: AFLIBERCEPT
     Dosage: 2 MG MILLIGRAM(S), 4WKS
     Route: 031
     Dates: start: 20150727, end: 20150727
  8. DOXAZOSIN [Concomitant]
     Active Substance: DOXAZOSIN\DOXAZOSIN MESYLATE
     Dosage: 4 MG MILLIGRAM(S), QD
     Route: 048
  9. ICAPS                              /07499601/ [Concomitant]
     Dosage: 3300 UNIT-5 MG-200 MG-75 UNIT
  10. AMLODIPINE [Concomitant]
     Active Substance: AMLODIPINE BESYLATE
     Dosage: 10 MG MILLIGRAM(S), QD
     Route: 048
  11. ATENOLOL. [Concomitant]
     Active Substance: ATENOLOL
     Dosage: 25 MG MILLIGRAM(S), QD
     Route: 048
  12. INDAPAMIDE. [Concomitant]
     Active Substance: INDAPAMIDE
     Dosage: 2.5 MG MILLIGRAM(S), QD
     Route: 048
  13. VYTORIN [Concomitant]
     Active Substance: EZETIMIBE\SIMVASTATIN
     Dosage: 10 MG-40 MG, QD
     Route: 048
  14. ALTACE [Concomitant]
     Active Substance: RAMIPRIL
     Dosage: 10 MG MILLIGRAM(S), QD
     Route: 048

REACTIONS (2)
  - Blindness transient [Recovered/Resolved]
  - Endophthalmitis [Recovered/Resolved]

NARRATIVE: CASE EVENT DATE: 20150128
